FAERS Safety Report 6714250-2 (Version None)
Quarter: 2010Q2

REPORT INFORMATION
  Report Type: 
  Country: None (occurrence: None)
  Receive Date: 20100506
  Receipt Date: 20090506
  Transmission Date: 20101027
  Serious: Yes (Other)
  Sender: FDA-Public Use
  Company Number: US-BAUSCH-2009BL002139

PATIENT
  Age: 50 Year
  Sex: Female

DRUGS (1)
  1. LOTEMAX [Suspect]
     Indication: PUNCTATE KERATITIS
     Route: 047
     Dates: start: 20080801, end: 20090301

REACTIONS (2)
  - INTRAOCULAR PRESSURE INCREASED [None]
  - VISUAL FIELD DEFECT [None]
